FAERS Safety Report 12681905 (Version 1)
Quarter: 2016Q3

REPORT INFORMATION
  Report Type: Spontaneous
  Country: FR (occurrence: FR)
  Receive Date: 20160824
  Receipt Date: 20160824
  Transmission Date: 20161109
  Serious: Yes (Other)
  Sender: FDA-Public Use
  Company Number: FR-MYLANLABS-2016M1034969

PATIENT

DRUGS (2)
  1. RAMIPRIL MYLAN 1,25 MG, COMPRIM? [Suspect]
     Active Substance: RAMIPRIL
     Indication: HYPERTENSION
     Dosage: 2.5 MG, QD
     Dates: end: 20160803
  2. RAMIPRIL MYLAN 1,25 MG, COMPRIM? [Suspect]
     Active Substance: RAMIPRIL
     Dosage: 1 DF, QD
     Route: 048
     Dates: start: 20160803, end: 20160804

REACTIONS (4)
  - Electrocardiogram T wave inversion [Unknown]
  - Hyperkalaemia [Recovered/Resolved]
  - Fall [None]
  - Atrioventricular block first degree [Unknown]

NARRATIVE: CASE EVENT DATE: 20160804
